FAERS Safety Report 7334197-0 (Version None)
Quarter: 2011Q1

REPORT INFORMATION
  Report Type: 
  Country: None (occurrence: None)
  Receive Date: 20110307
  Receipt Date: 20100401
  Transmission Date: 20110831
  Serious: No
  Sender: FDA-Public Use
  Company Number: US-BAYER-201019262NA

PATIENT
  Sex: Female

DRUGS (1)
  1. MIRENA [Suspect]
     Dosage: 20 MCG/24HR, CONT
     Route: 015
     Dates: start: 20100202, end: 20100331

REACTIONS (5)
  - ABNORMAL DREAMS [None]
  - WEIGHT INCREASED [None]
  - INSOMNIA [None]
  - NIGHT SWEATS [None]
  - ACNE [None]
